FAERS Safety Report 6140641-7 (Version None)
Quarter: 2009Q2

REPORT INFORMATION
  Report Type: 
  Country: None (occurrence: None)
  Receive Date: 20090401
  Receipt Date: 20090401
  Transmission Date: 20091009
  Serious: Yes (Hospitalization, Other)
  Sender: FDA-Public Use
  Company Number: None

PATIENT
  Age: 81 Year
  Sex: Female
  Weight: 68.0396 kg

DRUGS (1)
  1. OXYCONTIN [Suspect]
     Indication: KNEE OPERATION
     Dates: start: 20090324, end: 20090325

REACTIONS (13)
  - ADRENAL DISORDER [None]
  - AGGRESSION [None]
  - ANXIETY [None]
  - DOCUMENTED HYPERSENSITIVITY TO ADMINISTERED DRUG [None]
  - ELECTROLYTE IMBALANCE [None]
  - EMOTIONAL DISTRESS [None]
  - FAMILY STRESS [None]
  - FEAR [None]
  - MEDICATION ERROR [None]
  - PARANOIA [None]
  - SPEECH DISORDER [None]
  - STRESS [None]
  - SUSPICIOUSNESS [None]
